FAERS Safety Report 14980843 (Version 1)
Quarter: 2018Q2

REPORT INFORMATION
  Report Type: Spontaneous
  Country: US (occurrence: US)
  Receive Date: 20180606
  Receipt Date: 20180606
  Transmission Date: 20180711
  Serious: No
  Sender: FDA-Public Use
  Company Number: US-GALDERMA-US18008008

PATIENT
  Age: 58 Year
  Sex: Female

DRUGS (5)
  1. PROACTIV MD ADAPALENE ACNE TREATMENT [Suspect]
     Active Substance: ADAPALENE
     Indication: ACNE
     Dosage: 0.1%
     Route: 061
     Dates: start: 20180109, end: 20180109
  2. PROACTIV MD DEEP CLEANSING FACE WASH [Concomitant]
     Active Substance: COSMETICS
     Indication: ACNE
     Route: 061
     Dates: start: 20180109, end: 20180109
  3. DESITIN [Concomitant]
     Active Substance: ZINC OXIDE
     Indication: RASH PAPULAR
  4. DESITIN [Concomitant]
     Active Substance: ZINC OXIDE
     Indication: PRURITUS
  5. DESITIN [Concomitant]
     Active Substance: ZINC OXIDE
     Indication: ACNE

REACTIONS (3)
  - Rash papular [Not Recovered/Not Resolved]
  - Acne [Not Recovered/Not Resolved]
  - Pruritus [Not Recovered/Not Resolved]

NARRATIVE: CASE EVENT DATE: 20180110
